FAERS Safety Report 6652501-3 (Version None)
Quarter: 2010Q1

REPORT INFORMATION
  Report Type: 
  Country: None (occurrence: None)
  Receive Date: 20100324
  Receipt Date: 20100312
  Transmission Date: 20100710
  Serious: Yes (Other)
  Sender: FDA-Public Use
  Company Number: 008769

PATIENT
  Sex: Female

DRUGS (1)
  1. NEUPRO [Suspect]

REACTIONS (4)
  - GASTROINTESTINAL DISORDER [None]
  - GRANULOMA [None]
  - PLEURAL EFFUSION [None]
  - PULMONARY SARCOIDOSIS [None]
